FAERS Safety Report 9181036 (Version 1)
Quarter: 2013Q1

REPORT INFORMATION
  Report Type: Spontaneous
  Country: US (occurrence: US)
  Receive Date: 20130322
  Receipt Date: 20130322
  Transmission Date: 20140127
  Serious: No
  Sender: FDA-Public Use
  Company Number: PHEH2013US006651

PATIENT
  Sex: Female

DRUGS (6)
  1. TASIGNA [Suspect]
     Dosage: 800 UNK, UNK
     Route: 048
  2. TASIGNA [Suspect]
     Dosage: 200 MG, BID
     Route: 048
  3. OXYCONTIN [Concomitant]
  4. ZOLOFT [Concomitant]
  5. OXYCODONE [Concomitant]
  6. ASPIRIN [Concomitant]

REACTIONS (6)
  - Hypersomnia [Unknown]
  - Constipation [Unknown]
  - Hyperhidrosis [Unknown]
  - Fatigue [Unknown]
  - Photosensitivity reaction [Unknown]
  - Skin burning sensation [Unknown]
